FAERS Safety Report 7707829-2 (Version None)
Quarter: 2011Q3

REPORT INFORMATION
  Report Type: 
  Country: None (occurrence: None)
  Receive Date: 20110824
  Receipt Date: 20110810
  Transmission Date: 20111222
  Serious: Yes (Hospitalization, Other)
  Sender: FDA-Public Use
  Company Number: US-BAYER-2011-072890

PATIENT
  Age: 24 Year
  Sex: Female
  Weight: 59 kg

DRUGS (3)
  1. ALEVE (CAPLET) [Suspect]
     Dosage: BOTTLE COUNT 50S
     Route: 048
     Dates: start: 20110810
  2. EXCEDRIN (MIGRAINE) [Suspect]
     Dosage: 10 DF, UNK
     Route: 048
     Dates: start: 20110810
  3. IBUPROFEN [Suspect]
     Dosage: 5 DF, UNK
     Route: 048
     Dates: start: 20110810

REACTIONS (6)
  - NAUSEA [None]
  - ABDOMINAL PAIN UPPER [None]
  - VOMITING [None]
  - TINNITUS [None]
  - MALAISE [None]
  - FEELING DRUNK [None]
